FAERS Safety Report 5938021-X (Version None)
Quarter: 2008Q4

REPORT INFORMATION
  Report Type: 
  Country: None (occurrence: None)
  Receive Date: 20081031
  Receipt Date: 20081024
  Transmission Date: 20090506
  Serious: Yes (Hospitalization)
  Sender: FDA-Public Use
  Company Number: US-AMGEN-QUU315293

PATIENT
  Sex: Female

DRUGS (2)
  1. ENBREL [Suspect]
     Indication: RHEUMATOID ARTHRITIS
     Route: 058
     Dates: start: 19850101
  2. METHOTREXATE [Concomitant]
     Dates: start: 19850101

REACTIONS (4)
  - ABDOMINAL PAIN [None]
  - BACK PAIN [None]
  - COLON CANCER [None]
  - DIARRHOEA [None]
